FAERS Safety Report 9803211 (Version 3)
Quarter: 2015Q1

REPORT INFORMATION
  Report Type: Spontaneous
  Country: US (occurrence: US)
  Receive Date: 20140108
  Receipt Date: 20150220
  Transmission Date: 20150721
  Serious: No
  Sender: FDA-Public Use
  Company Number: US-PFIZER INC-2014001901

PATIENT
  Age: 52 Year
  Sex: Male

DRUGS (3)
  1. GLUCOSAMINE [Concomitant]
     Active Substance: GLUCOSAMINE
     Dosage: 1500 MG, 2X/DAY
  2. SUTENT [Suspect]
     Active Substance: SUNITINIB MALATE
     Indication: SOFT TISSUE SARCOMA
     Dosage: 37.5 MG (25 MG PLUS 12.5 MG), DAILY
     Route: 048
     Dates: start: 20130923
  3. SUTENT [Suspect]
     Active Substance: SUNITINIB MALATE
     Indication: HEAD AND NECK CANCER
     Dosage: 37.5 MG, DAILY
     Route: 048
     Dates: start: 20130731

REACTIONS (3)
  - Hypoaesthesia [Unknown]
  - Asthenia [Unknown]
  - Abdominal pain upper [Unknown]

NARRATIVE: CASE EVENT DATE: 20140102
